FAERS Safety Report 22686031 (Version 4)
Quarter: 2024Q3

REPORT INFORMATION
  Report Type: Report from Study
  Country: CN (occurrence: CN)
  Receive Date: 20230710
  Receipt Date: 20240930
  Transmission Date: 20241016
  Serious: Yes (Other)
  Sender: JOHNSON AND JOHNSON
  Company Number: CN-BAYER-2023A093660

PATIENT
  Age: 30 Year
  Sex: Female

DRUGS (3)
  1. VENTAVIS [Suspect]
     Active Substance: ILOPROST
     Indication: Right-to-left cardiac shunt
     Dosage: UNK
     Route: 055
  2. OXYGEN [Concomitant]
     Active Substance: OXYGEN
  3. DIGOXIN [Concomitant]
     Active Substance: DIGOXIN

REACTIONS (6)
  - Foetal death [Unknown]
  - Premature delivery [Unknown]
  - Haemorrhage [Unknown]
  - Maternal exposure during pregnancy [Unknown]
  - Contraindicated product administered [Unknown]
  - Off label use [Unknown]
